FAERS Safety Report 5056152-6 (Version None)
Quarter: 2006Q3

REPORT INFORMATION
  Report Type: 
  Country: None (occurrence: None)
  Receive Date: 20060720
  Receipt Date: 20060707
  Transmission Date: 20061208
  Serious: Yes (Hospitalization)
  Sender: FDA-Public Use
  Company Number: JP-JPN-A200602538

PATIENT
  Age: 78 Year
  Sex: Female
  Weight: 49 kg

DRUGS (18)
  1. PAXIL [Suspect]
     Indication: DEPRESSION
     Route: 048
     Dates: start: 20060307, end: 20060330
  2. LASIX [Suspect]
     Indication: CARDIAC FAILURE CONGESTIVE
     Dosage: 20MG PER DAY
     Route: 048
     Dates: start: 20060304, end: 20060327
  3. ALDACTONE [Suspect]
     Indication: CARDIAC FAILURE CONGESTIVE
     Dosage: 25MG PER DAY
     Route: 048
  4. HOKUNALIN [Concomitant]
     Route: 062
  5. UNKNOWN [Concomitant]
     Route: 065
  6. LUVOX [Concomitant]
     Indication: DEPRESSION
     Dosage: 50MG PER DAY
     Route: 048
     Dates: start: 20060331, end: 20060406
  7. LUVOX [Concomitant]
     Dosage: 25MG PER DAY
     Route: 048
  8. FLUMARIN [Concomitant]
     Indication: PNEUMONIA
     Dosage: 2G PER DAY
     Route: 042
     Dates: start: 20060218, end: 20060222
  9. FLUMARIN [Concomitant]
     Dosage: 2G PER DAY
     Route: 042
  10. ROCEPHIN [Concomitant]
     Indication: PNEUMONIA
     Dosage: 1G PER DAY
     Route: 042
     Dates: start: 20060223, end: 20060225
  11. UNKNOWN [Concomitant]
     Indication: PNEUMONIA
     Dosage: .5G PER DAY
     Route: 042
     Dates: start: 20060307, end: 20060317
  12. MINOPEN [Concomitant]
     Indication: PNEUMONIA
     Dosage: 1G PER DAY
     Route: 042
     Dates: start: 20060310, end: 20060313
  13. ZITHROMAC [Concomitant]
     Indication: PNEUMONIA
     Dosage: 500MG PER DAY
     Route: 048
     Dates: start: 20060218, end: 20060220
  14. ZITHROMAC [Concomitant]
     Dosage: 500MG PER DAY
     Route: 048
     Dates: start: 20060227, end: 20060301
  15. HOCHU-EKKI-TO [Concomitant]
     Indication: ANOREXIA
     Dosage: 7.5G PER DAY
     Route: 048
     Dates: start: 20060222, end: 20060224
  16. DOGMATYL [Concomitant]
     Indication: ANOREXIA
     Dosage: 150MG PER DAY
     Route: 048
     Dates: start: 20060224, end: 20060226
  17. CRAVIT [Concomitant]
     Indication: PNEUMONIA
     Dosage: 400MG PER DAY
     Route: 048
     Dates: start: 20060224, end: 20060226
  18. HYPEN [Concomitant]
     Indication: CHONDROCALCINOSIS PYROPHOSPHATE
     Dosage: 400MG PER DAY
     Route: 048
     Dates: start: 20060315

REACTIONS (6)
  - ARTHRITIS [None]
  - BLOOD CHLORIDE DECREASED [None]
  - C-REACTIVE PROTEIN INCREASED [None]
  - HYPONATRAEMIA [None]
  - INAPPROPRIATE ANTIDIURETIC HORMONE SECRETION [None]
  - SOMNOLENCE [None]
